FAERS Safety Report 4415571-9 (Version None)
Quarter: 2004Q3

REPORT INFORMATION
  Report Type: 
  Country: None (occurrence: None)
  Receive Date: 20040804
  Receipt Date: 20040729
  Transmission Date: 20050211
  Serious: Yes (Hospitalization)
  Sender: FDA-Public Use
  Company Number: US-MERCK-0407USA02530

PATIENT
  Sex: Male

DRUGS (1)
  1. COSOPT [Suspect]
     Route: 047
     Dates: end: 20040701

REACTIONS (1)
  - CARDIAC DISORDER [None]
